FAERS Safety Report 8971313 (Version 2)
Quarter: 2013Q1

REPORT INFORMATION
  Report Type: Spontaneous
  Country: CA (occurrence: CA)
  Receive Date: 20121218
  Receipt Date: 20130211
  Transmission Date: 20140127
  Serious: Yes (Other)
  Sender: FDA-Public Use
  Company Number: CA-AMGEN-CANSP2012051576

PATIENT
  Age: 50 Year
  Sex: Female

DRUGS (6)
  1. ENBREL [Suspect]
     Indication: RHEUMATOID ARTHRITIS
     Dosage: 50 MG, QWK
     Route: 058
     Dates: start: 201102, end: 201208
  2. PLAQUENIL                          /00072602/ [Concomitant]
     Indication: RHEUMATOID ARTHRITIS
     Dosage: 20 MG, BID
     Route: 048
     Dates: start: 2002
  3. AMITRIPTYLINE [Concomitant]
     Dosage: UNK
  4. MORPHINE [Concomitant]
     Indication: RHEUMATOID ARTHRITIS
     Dosage: 10 UNK, QID
     Route: 048
     Dates: start: 2008
  5. LOSEC                              /00661201/ [Concomitant]
     Indication: REFLUX GASTRITIS
     Dosage: 20 UNK, QD
     Route: 048
     Dates: start: 2008
  6. DOMPERIDONE [Concomitant]
     Indication: ABDOMINAL DISCOMFORT
     Dosage: 10 UNK, TID
     Route: 048
     Dates: start: 2008

REACTIONS (5)
  - Balance disorder [Not Recovered/Not Resolved]
  - Demyelination [Unknown]
  - Hypoaesthesia [Unknown]
  - Sensory loss [Not Recovered/Not Resolved]
  - Paraesthesia [Unknown]
